FAERS Safety Report 19630920 (Version 6)
Quarter: 2022Q2

REPORT INFORMATION
  Report Type: Report from Study
  Country: ES (occurrence: ES)
  Receive Date: 20210729
  Receipt Date: 20220627
  Transmission Date: 20220721
  Serious: Yes (Other)
  Sender: FDA-Public Use
  Company Number: ES-TAKEDA-2021TUS045166

PATIENT
  Age: 67 Year
  Sex: Male

DRUGS (36)
  1. TEDUGLUTIDE [Suspect]
     Active Substance: TEDUGLUTIDE
     Indication: Short-bowel syndrome
     Dosage: 3.95 MILLIGRAM, 1/WEEK
     Route: 042
     Dates: start: 20190425, end: 20210630
  2. TEDUGLUTIDE [Suspect]
     Active Substance: TEDUGLUTIDE
     Indication: Short-bowel syndrome
     Dosage: 3.95 MILLIGRAM, 1/WEEK
     Route: 042
     Dates: start: 20190425, end: 20210630
  3. TEDUGLUTIDE [Suspect]
     Active Substance: TEDUGLUTIDE
     Indication: Short-bowel syndrome
     Dosage: 3.95 MILLIGRAM, 1/WEEK
     Route: 042
     Dates: start: 20190425, end: 20210630
  4. TEDUGLUTIDE [Suspect]
     Active Substance: TEDUGLUTIDE
     Indication: Short-bowel syndrome
     Dosage: 3.95 MILLIGRAM, 1/WEEK
     Route: 042
     Dates: start: 20190425, end: 20210630
  5. TEDUGLUTIDE [Suspect]
     Active Substance: TEDUGLUTIDE
     Dosage: 1.9 MILLIGRAM, 1/WEEK
     Route: 042
     Dates: start: 20210630
  6. TEDUGLUTIDE [Suspect]
     Active Substance: TEDUGLUTIDE
     Dosage: 1.9 MILLIGRAM, 1/WEEK
     Route: 042
     Dates: start: 20210630
  7. TEDUGLUTIDE [Suspect]
     Active Substance: TEDUGLUTIDE
     Dosage: 1.9 MILLIGRAM, 1/WEEK
     Route: 042
     Dates: start: 20210630
  8. TEDUGLUTIDE [Suspect]
     Active Substance: TEDUGLUTIDE
     Dosage: 1.9 MILLIGRAM, 1/WEEK
     Route: 042
     Dates: start: 20210630
  9. TEDUGLUTIDE [Suspect]
     Active Substance: TEDUGLUTIDE
     Dosage: 1.9 MILLIGRAM, 1/WEEK
     Route: 042
     Dates: start: 20210630, end: 20210727
  10. TEDUGLUTIDE [Suspect]
     Active Substance: TEDUGLUTIDE
     Dosage: 1.9 MILLIGRAM, 1/WEEK
     Route: 042
     Dates: start: 20210630, end: 20210727
  11. TEDUGLUTIDE [Suspect]
     Active Substance: TEDUGLUTIDE
     Dosage: 1.9 MILLIGRAM, 1/WEEK
     Route: 042
     Dates: start: 20210630, end: 20210727
  12. TEDUGLUTIDE [Suspect]
     Active Substance: TEDUGLUTIDE
     Dosage: 1.9 MILLIGRAM, 1/WEEK
     Route: 042
     Dates: start: 20210630, end: 20210727
  13. TEDUGLUTIDE [Suspect]
     Active Substance: TEDUGLUTIDE
     Dosage: 1.9 MILLIGRAM, 1/WEEK
     Route: 042
     Dates: start: 20210727
  14. TEDUGLUTIDE [Suspect]
     Active Substance: TEDUGLUTIDE
     Dosage: 1.9 MILLIGRAM, 1/WEEK
     Route: 042
     Dates: start: 20210727
  15. TEDUGLUTIDE [Suspect]
     Active Substance: TEDUGLUTIDE
     Dosage: 1.9 MILLIGRAM, 1/WEEK
     Route: 042
     Dates: start: 20210727
  16. TEDUGLUTIDE [Suspect]
     Active Substance: TEDUGLUTIDE
     Dosage: 1.9 MILLIGRAM, 1/WEEK
     Route: 042
     Dates: start: 20210727
  17. TEDUGLUTIDE [Suspect]
     Active Substance: TEDUGLUTIDE
     Dosage: 0.025 MILLIGRAM/KILOGRAM
     Route: 042
     Dates: start: 20210629, end: 20210727
  18. TEDUGLUTIDE [Suspect]
     Active Substance: TEDUGLUTIDE
     Dosage: 0.025 MILLIGRAM/KILOGRAM
     Route: 042
     Dates: start: 20210629, end: 20210727
  19. TEDUGLUTIDE [Suspect]
     Active Substance: TEDUGLUTIDE
     Dosage: 0.025 MILLIGRAM/KILOGRAM
     Route: 042
     Dates: start: 20210629, end: 20210727
  20. TEDUGLUTIDE [Suspect]
     Active Substance: TEDUGLUTIDE
     Dosage: 0.025 MILLIGRAM/KILOGRAM
     Route: 042
     Dates: start: 20210629, end: 20210727
  21. FERINJECT [Concomitant]
     Active Substance: FERRIC CARBOXYMALTOSE
     Indication: Iron deficiency anaemia
     Dosage: 1 GRAM, MONTHLY
     Route: 042
     Dates: start: 20201211, end: 20210111
  22. FERINJECT [Concomitant]
     Active Substance: FERRIC CARBOXYMALTOSE
     Dosage: 1 GRAM, QD
     Route: 042
     Dates: start: 20210712, end: 20210712
  23. FERINJECT [Concomitant]
     Active Substance: FERRIC CARBOXYMALTOSE
     Dosage: 1 GRAM, QD
     Route: 042
     Dates: start: 20210816, end: 20210816
  24. BETAHISTINE HYDROCHLORIDE [Concomitant]
     Active Substance: BETAHISTINE HYDROCHLORIDE
     Indication: Vertigo
     Dosage: 8 MILLIGRAM, TID
     Route: 048
     Dates: start: 20201212, end: 20201213
  25. VIRIREC [Concomitant]
     Indication: Erectile dysfunction
     Dosage: 3 MILLIGRAM
     Route: 061
     Dates: start: 20190717
  26. METAMIZOLE MAGNESIUM [Concomitant]
     Active Substance: METAMIZOLE MAGNESIUM
     Indication: Pain
     Dosage: 1 DOSAGE FORM, BID
     Route: 048
     Dates: start: 20200701, end: 20200809
  27. LYRICA [Concomitant]
     Active Substance: PREGABALIN
     Indication: Sciatica
     Dosage: 75 MILLIGRAM, QD
     Route: 065
  28. EBASTINE [Concomitant]
     Active Substance: EBASTINE
     Indication: Urticaria
     Dosage: 20 MILLIGRAM, QD
     Route: 065
  29. POLARAMINE [Concomitant]
     Active Substance: DEXCHLORPHENIRAMINE MALEATE
     Indication: Urticaria
     Dosage: 2 MILLIGRAM, QD
     Route: 065
  30. CALCIFEDIOL [Concomitant]
     Active Substance: CALCIFEDIOL
     Indication: Prophylaxis
     Dosage: 0.266 MILLIGRAM
     Route: 065
  31. GEMFIBROZIL [Concomitant]
     Active Substance: GEMFIBROZIL
     Indication: Hypertriglyceridaemia
     Dosage: 900 MILLIGRAM, QD
     Route: 065
  32. LOPERAMIDE HYDROCHLORIDE [Concomitant]
     Active Substance: LOPERAMIDE HYDROCHLORIDE
     Indication: Peristalsis visible
     Dosage: 4 MILLIGRAM, TID
     Route: 065
  33. CODEINE PHOSPHATE [Concomitant]
     Active Substance: CODEINE PHOSPHATE
     Indication: Peristalsis visible
     Dosage: 1 DOSAGE FORM, TID
     Route: 065
  34. NATECAL D FLASH [Concomitant]
     Indication: Prophylaxis
     Dosage: 1 DOSAGE FORM, QD
     Route: 065
  35. MAGNESIOBOI [Concomitant]
     Indication: Prophylaxis
     Dosage: 1 DOSAGE FORM, QD
     Route: 065
  36. LANSOPRAZOLE [Concomitant]
     Active Substance: LANSOPRAZOLE
     Indication: Gastric disorder
     Dosage: 15 MILLIGRAM, QD
     Route: 065

REACTIONS (4)
  - Renal failure [Recovered/Resolved]
  - Post procedural haemorrhage [Recovered/Resolved]
  - Vomiting [Recovered/Resolved]
  - Abdominal pain [Recovered/Resolved]

NARRATIVE: CASE EVENT DATE: 20210602
